FAERS Safety Report 8139036-6 (Version None)
Quarter: 2012Q1

REPORT INFORMATION
  Report Type: 
  Country: None (occurrence: None)
  Receive Date: 20120215
  Receipt Date: 20120207
  Transmission Date: 20120608
  Serious: Yes (Other)
  Sender: FDA-Public Use
  Company Number: US-ROCHE-784141

PATIENT
  Sex: Male
  Weight: 79.45 kg

DRUGS (4)
  1. ACCUTANE [Suspect]
     Indication: ACNE
     Route: 048
  2. BACTROBAN [Concomitant]
  3. ACCUTANE [Suspect]
     Route: 048
     Dates: start: 19960321, end: 19960601
  4. ASPIRIN [Concomitant]

REACTIONS (10)
  - IRRITABLE BOWEL SYNDROME [None]
  - INFLAMMATORY BOWEL DISEASE [None]
  - DEPRESSION [None]
  - STRESS [None]
  - HEADACHE [None]
  - VISION BLURRED [None]
  - ARTHRALGIA [None]
  - COLITIS ULCERATIVE [None]
  - EPISTAXIS [None]
  - LIP DRY [None]
